FAERS Safety Report 10178304 (Version 4)
Quarter: 2015Q2

REPORT INFORMATION
  Report Type: Report from Study
  Country: CA (occurrence: CA)
  Receive Date: 20140519
  Receipt Date: 20150601
  Transmission Date: 20150821
  Serious: Yes (Other)
  Sender: FDA-Public Use
  Company Number: CA-ROCHE-1356482

PATIENT
  Sex: Female
  Weight: 62.6 kg

DRUGS (13)
  1. GABAPENTIN. [Concomitant]
     Active Substance: GABAPENTIN
  2. ZOFRAN [Concomitant]
     Active Substance: ONDANSETRON HYDROCHLORIDE
  3. LEFLUNOMIDE. [Concomitant]
     Active Substance: LEFLUNOMIDE
  4. BISACODYL SUPPOSITORY [Concomitant]
     Active Substance: BISACODYL
  5. ACTEMRA [Suspect]
     Active Substance: TOCILIZUMAB
     Indication: RHEUMATOID ARTHRITIS
     Route: 042
     Dates: start: 20130423, end: 20141014
  6. TYLENOL WITH CODEINE [Concomitant]
     Active Substance: ACETAMINOPHEN\CODEINE PHOSPHATE
  7. PREDNISONE. [Concomitant]
     Active Substance: PREDNISONE
  8. ACTEMRA [Suspect]
     Active Substance: TOCILIZUMAB
     Indication: RHEUMATOID ARTHRITIS
     Route: 058
  9. HYDROMORPHONE [Concomitant]
     Active Substance: HYDROMORPHONE
  10. MELOXICAM. [Concomitant]
     Active Substance: MELOXICAM
  11. LACTULOSE. [Concomitant]
     Active Substance: LACTULOSE
  12. COLACE [Concomitant]
     Active Substance: DOCUSATE SODIUM
  13. SENOKOT [Concomitant]
     Active Substance: SENNOSIDES

REACTIONS (4)
  - Infection [Unknown]
  - Blindness unilateral [Not Recovered/Not Resolved]
  - Wound [Not Recovered/Not Resolved]
  - Ulcer [Not Recovered/Not Resolved]
